FAERS Safety Report 9321970 (Version 1)
Quarter: 2013Q2

REPORT INFORMATION
  Report Type: Spontaneous
  Country: US (occurrence: None)
  Receive Date: 20130530
  Receipt Date: 20130530
  Transmission Date: 20140414
  Serious: Yes (Hospitalization)
  Sender: FDA-Public Use
  Company Number: None

PATIENT
  Age: 34 Year
  Sex: Male

DRUGS (1)
  1. METOPROLOL [Suspect]
     Indication: HEART RATE INCREASED
     Dosage: ONE TABLET
     Route: 048
     Dates: start: 20130423, end: 20130524

REACTIONS (8)
  - Palpitations [None]
  - Cold sweat [None]
  - Nausea [None]
  - Fatigue [None]
  - Panic disorder [None]
  - Heart rate increased [None]
  - Blood pressure increased [None]
  - Weight decreased [None]
